FAERS Safety Report 21711782 (Version 2)
Quarter: 2022Q4

REPORT INFORMATION
  Report Type: Report from Study
  Country: US (occurrence: US)
  Receive Date: 20221212
  Receipt Date: 20221212
  Transmission Date: 20230112
  Serious: No
  Sender: FDA-Public Use
  Company Number: US-ABBVIE-4224879

PATIENT
  Sex: Female

DRUGS (1)
  1. HUMIRA [Suspect]
     Active Substance: ADALIMUMAB
     Indication: Rheumatoid arthritis
     Route: 058

REACTIONS (4)
  - Injection site haemorrhage [Recovering/Resolving]
  - Injury associated with device [Recovering/Resolving]
  - Device issue [Recovering/Resolving]
  - Incorrect dose administered [Recovering/Resolving]
